FAERS Safety Report 24802784 (Version 2)
Quarter: 2025Q1

REPORT INFORMATION
  Report Type: Spontaneous
  Country: US (occurrence: US)
  Receive Date: 20250103
  Receipt Date: 20250127
  Transmission Date: 20250408
  Serious: No
  Sender: BRISTOL-MYERS SQUIBB COMPANY
  Company Number: US-BRISTOL-MYERS SQUIBB COMPANY-2025-000830

PATIENT
  Age: 51 Year
  Sex: Male
  Weight: 90.72 kg

DRUGS (5)
  1. ELIQUIS [Suspect]
     Active Substance: APIXABAN
     Indication: Pulmonary embolism
     Dates: start: 20241215
  2. ELIQUIS [Suspect]
     Active Substance: APIXABAN
     Dates: start: 20241215
  3. GABAPENTIN [Concomitant]
     Active Substance: GABAPENTIN
     Indication: Product used for unknown indication
  4. AMLODIPINE [Concomitant]
     Active Substance: AMLODIPINE BESYLATE
     Indication: Myocardial infarction
  5. AMLODIPINE [Concomitant]
     Active Substance: AMLODIPINE BESYLATE
     Indication: Cerebrovascular accident

REACTIONS (4)
  - Pruritus [Unknown]
  - Expired product administered [Unknown]
  - Product taste abnormal [Unknown]
  - Throat irritation [Unknown]
